FAERS Safety Report 17547600 (Version 1)
Quarter: 2020Q1

REPORT INFORMATION
  Report Type: Report from Study
  Country: JP (occurrence: JP)
  Receive Date: 20200316
  Receipt Date: 20200316
  Transmission Date: 20200409
  Serious: Yes (Other)
  Sender: FDA-Public Use
  Company Number: JP-INCYTE CORPORATION-2019IN013279

PATIENT

DRUGS (2)
  1. JAKAVI [Suspect]
     Active Substance: RUXOLITINIB
     Indication: MYELOFIBROSIS
     Dosage: 15 MG, BID
     Route: 048
     Dates: start: 20170119, end: 20191128
  2. JAKAVI [Suspect]
     Active Substance: RUXOLITINIB
     Dosage: 35 MG(2 TIMES A DAY)
     Route: 048
     Dates: start: 20191129

REACTIONS (4)
  - Hepatic function abnormal [Recovering/Resolving]
  - Lymphocyte count decreased [Recovering/Resolving]
  - Myelofibrosis [Not Recovered/Not Resolved]
  - Gamma-glutamyltransferase increased [Recovering/Resolving]

NARRATIVE: CASE EVENT DATE: 20180315
